FAERS Safety Report 14670353 (Version 1)
Quarter: 2018Q1

REPORT INFORMATION
  Report Type: Spontaneous
  Country: US (occurrence: US)
  Receive Date: 20180322
  Receipt Date: 20180322
  Transmission Date: 20180509
  Serious: No
  Sender: FDA-Public Use
  Company Number: US-ADAMAS PHARMA, LLC-2018ADA00080

PATIENT
  Sex: Female

DRUGS (6)
  1. ASPIRIN. [Concomitant]
     Active Substance: ASPIRIN
  2. DIGOXIN. [Concomitant]
     Active Substance: DIGOXIN
  3. ATENOLOL. [Concomitant]
     Active Substance: ATENOLOL
  4. RASAGILINE. [Concomitant]
     Active Substance: RASAGILINE
  5. GOCOVRI [Suspect]
     Active Substance: AMANTADINE
     Indication: DYSKINESIA
     Dosage: 274 MG, 1X/DAY AT BEDTIME
     Route: 048
     Dates: start: 20171124
  6. LEVODOPA [Concomitant]
     Active Substance: LEVODOPA

REACTIONS (1)
  - Dry mouth [Not Recovered/Not Resolved]
